FAERS Safety Report 9559687 (Version 1)
Quarter: 2013Q3

REPORT INFORMATION
  Report Type: Spontaneous
  Country: US (occurrence: None)
  Receive Date: 20130913
  Receipt Date: 20130913
  Transmission Date: 20140515
  Serious: Yes (Other)
  Sender: FDA-Public Use
  Company Number: 1000044955

PATIENT
  Age: 77 Year
  Sex: Female

DRUGS (5)
  1. DALIRESP (ROFLUMILAST) (500 MICROGRAM, TABLETS) [Suspect]
     Indication: CHRONIC OBSTRUCTIVE PULMONARY DISEASE
     Route: 048
     Dates: start: 20130413, end: 20130420
  2. ALBUTEROL [Concomitant]
  3. LISINOPRIL [Concomitant]
  4. IRON [Concomitant]
  5. LOVASTATIN [Concomitant]

REACTIONS (3)
  - Depression [None]
  - Nausea [None]
  - Decreased appetite [None]
